FAERS Safety Report 7973907-6 (Version None)
Quarter: 2011Q4

REPORT INFORMATION
  Report Type: 
  Country: None (occurrence: None)
  Receive Date: 20111209
  Receipt Date: 20111130
  Transmission Date: 20120403
  Serious: Yes (Life-Threatening, Hospitalization)
  Sender: FDA-Public Use
  Company Number: 1121589

PATIENT
  Age: 3 Year
  Sex: Female
  Weight: 18 kg

DRUGS (8)
  1. PREVACID [Concomitant]
  2. LIDOCAINE [Suspect]
     Indication: PRODUCT USED FOR UNKNOWN INDICATION
  3. VENTOLIN [Concomitant]
  4. QUELICIN [Suspect]
     Indication: PRODUCT USED FOR UNKNOWN INDICATION
  5. SEVOFLURANE [Suspect]
     Indication: PRODUCT USED FOR UNKNOWN INDICATION
  6. DEXAMETHASONE [Suspect]
     Indication: PRODUCT USED FOR UNKNOWN INDICATION
  7. QVAR 40 [Concomitant]
  8. VENTOLIN [Suspect]
     Indication: PRODUCT USED FOR UNKNOWN INDICATION

REACTIONS (3)
  - GAIT DISTURBANCE [None]
  - RHABDOMYOLYSIS [None]
  - ARTHROPATHY [None]
